FAERS Safety Report 6701782-6 (Version None)
Quarter: 2010Q2

REPORT INFORMATION
  Report Type: 
  Country: None (occurrence: None)
  Receive Date: 20100427
  Receipt Date: 20100419
  Transmission Date: 20101027
  Serious: Yes (Hospitalization)
  Sender: FDA-Public Use
  Company Number: 2010AL002370

PATIENT
  Age: 67 Year
  Sex: Male

DRUGS (2)
  1. IBUPROFEN [Suspect]
     Indication: PAIN
     Dosage: 400 MG; PO  PAIN
     Route: 048
     Dates: end: 20100320
  2. FEVERALL [Suspect]
     Indication: PAIN
     Dosage: 500 MG; PO
     Route: 054
     Dates: end: 20100320

REACTIONS (7)
  - DUODENAL ULCER [None]
  - HAEMATEMESIS [None]
  - HAEMOGLOBIN DECREASED [None]
  - MEDICATION ERROR [None]
  - MELAENA [None]
  - MULTIPLE DRUG OVERDOSE [None]
  - TACHYCARDIA [None]
